FAERS Safety Report 5819913-9 (Version None)
Quarter: 2008Q3

REPORT INFORMATION
  Report Type: 
  Country: None (occurrence: None)
  Receive Date: 20080717
  Receipt Date: 20080708
  Transmission Date: 20090109
  Serious: Yes (Hospitalization, Other)
  Sender: FDA-Public Use
  Company Number: 2008AL007710

PATIENT
  Age: 41 Year
  Sex: Male

DRUGS (1)
  1. DIGOXIN [Suspect]
     Indication: ARRHYTHMIA
     Dosage: 0.125MG DAILY PO
     Route: 048
     Dates: start: 19880101, end: 20080701

REACTIONS (4)
  - ATRIAL FIBRILLATION [None]
  - DIZZINESS [None]
  - DYSPNOEA [None]
  - SYNCOPE [None]
